FAERS Safety Report 7911279-3 (Version None)
Quarter: 2011Q4

REPORT INFORMATION
  Report Type: 
  Country: None (occurrence: None)
  Receive Date: 20111109
  Receipt Date: 20111024
  Transmission Date: 20120403
  Serious: Yes (Hospitalization)
  Sender: FDA-Public Use
  Company Number: DSA_47954_2011

PATIENT
  Age: 62 Year
  Sex: Female

DRUGS (8)
  1. LOSARTAN POTASSIUM [Concomitant]
  2. ASPIRINE PROTECT [Concomitant]
  3. CYMBALTA [Concomitant]
  4. LEVOTHYROXINE SODIUM [Concomitant]
  5. ENALAPRIL MALEATE AND HYDROCHLOROTHIAZIDE [Suspect]
     Indication: PRODUCT USED FOR UNKNOWN INDICATION
     Dosage: (10-25MG, ONE-HALF TABLET (5-12.5 MG) ONCE DAILY ORAL)
     Route: 048
     Dates: start: 20020101, end: 20111019
  6. LASIX [Concomitant]
  7. INSULIN [Concomitant]
  8. ALLOPURINOL [Concomitant]

REACTIONS (6)
  - RENAL IMPAIRMENT [None]
  - METABOLIC DISORDER [None]
  - HYPERKALAEMIA [None]
  - RENAL DISORDER [None]
  - BLOOD GLUCOSE DECREASED [None]
  - CONDITION AGGRAVATED [None]
